FAERS Safety Report 11676736 (Version 1)
Quarter: 2015Q4

REPORT INFORMATION
  Report Type: Spontaneous
  Country: US (occurrence: US)
  Receive Date: 20151028
  Receipt Date: 20151028
  Transmission Date: 20160304
  Serious: Yes (Hospitalization)
  Sender: FDA-Public Use
  Company Number: US-PFIZER INC-2015349611

PATIENT
  Age: 28 Year
  Sex: Female
  Weight: 132 kg

DRUGS (7)
  1. MOTRIN [Concomitant]
     Active Substance: IBUPROFEN
     Dosage: 400 MG, 1X/DAY 12 HOURS
  2. GABAPENTIN. [Suspect]
     Active Substance: GABAPENTIN
     Indication: BREAKTHROUGH PAIN
     Dosage: 100 MG, UNK, (THREE TIMES A DAY AS NEEDED)
  3. PRAZOSIN [Concomitant]
     Active Substance: PRAZOSIN
     Dosage: 2 MG, 1X/DAY, (AT NIGHT)
  4. HYDROXYZINE PAM [Concomitant]
     Indication: ANXIETY
     Dosage: 50 MG, 3X/DAY
  5. LYRICA [Suspect]
     Active Substance: PREGABALIN
     Indication: FIBROMYALGIA
     Dosage: 150 MG, 3X/DAY
  6. VENLAFAXINE HCL [Concomitant]
     Active Substance: VENLAFAXINE HYDROCHLORIDE
     Dosage: 150 MG, 1X/DAY
  7. HYDROXYZINE PAM [Concomitant]
     Dosage: 100 MG, 3X/DAY

REACTIONS (2)
  - Breakthrough pain [Unknown]
  - Post-traumatic stress disorder [Unknown]
